FAERS Safety Report 23310057 (Version 1)
Quarter: 2023Q4

REPORT INFORMATION
  Report Type: Spontaneous
  Country: US (occurrence: US)
  Receive Date: 20231218
  Receipt Date: 20231218
  Transmission Date: 20240109
  Serious: No
  Sender: FDA-Public Use
  Company Number: US-ANIPHARMA-2023-US-004040

PATIENT
  Age: 78 Year
  Sex: Male
  Weight: 74.84 kg

DRUGS (13)
  1. POLYETHYLENE GLYCOL 3350 [Suspect]
     Active Substance: POLYETHYLENE GLYCOL 3350
     Indication: Constipation
     Dosage: 4OZ
     Route: 048
     Dates: start: 20230217, end: 20230217
  2. TAMSULOSIN [Concomitant]
     Active Substance: TAMSULOSIN
  3. TIOTROPIUM [Concomitant]
     Active Substance: TIOTROPIUM
  4. TRAZODONE [Concomitant]
     Active Substance: TRAZODONE HYDROCHLORIDE
  5. ASPIRIN [Concomitant]
     Active Substance: ASPIRIN
  6. METFORMIN [Concomitant]
     Active Substance: METFORMIN HYDROCHLORIDE
  7. ATENOLOL [Concomitant]
     Active Substance: ATENOLOL
  8. HYDROCHLOROTHIAZIDE [Concomitant]
     Active Substance: HYDROCHLOROTHIAZIDE
  9. ATORVASTATIN [Concomitant]
     Active Substance: ATORVASTATIN
  10. FERROUS SULFATE [Concomitant]
     Active Substance: FERROUS SULFATE
  11. FLUTICASONE [Concomitant]
     Active Substance: FLUTICASONE
  12. SALMETEROL [Concomitant]
     Active Substance: SALMETEROL
  13. PANTOPRAZOLE [Concomitant]
     Active Substance: PANTOPRAZOLE

REACTIONS (2)
  - Flushing [Recovering/Resolving]
  - Dizziness [Recovering/Resolving]

NARRATIVE: CASE EVENT DATE: 20230217
